FAERS Safety Report 7426090-X (Version None)
Quarter: 2011Q2

REPORT INFORMATION
  Report Type: 
  Country: None (occurrence: None)
  Receive Date: 20110420
  Receipt Date: 20110407
  Transmission Date: 20111010
  Serious: Yes (Other)
  Sender: FDA-Public Use
  Company Number: PHHY2011US08954

PATIENT
  Sex: Female
  Weight: 26 kg

DRUGS (1)
  1. EXJADE [Suspect]
     Indication: SICKLE CELL ANAEMIA
     Dosage: 500 MG, QD
     Route: 048
     Dates: start: 20091201, end: 20110105

REACTIONS (3)
  - SERUM FERRITIN INCREASED [None]
  - PELVI-URETERIC OBSTRUCTION [None]
  - HAEMATURIA [None]
